FAERS Safety Report 15402324 (Version 1)
Quarter: 2018Q3

REPORT INFORMATION
  Report Type: Spontaneous
  Country: US (occurrence: US)
  Receive Date: 20180914
  Receipt Date: 20180914
  Transmission Date: 20181010
  Serious: No
  Sender: FDA-Public Use
  Company Number: None

PATIENT
  Age: 79 Year
  Sex: Female
  Weight: 68.04 kg

DRUGS (13)
  1. REPATHA [Suspect]
     Active Substance: EVOLOCUMAB
     Indication: BLOOD CHOLESTEROL INCREASED
     Dosage: ?          QUANTITY:1 DF DOSAGE FORM;??REPATHA RN HAS THIS INFO?
     Dates: start: 20180613, end: 20180627
  2. HYDROCODONE [Concomitant]
     Active Substance: HYDROCODONE
  3. LEXAPRO [Concomitant]
     Active Substance: ESCITALOPRAM OXALATE
  4. ESTORADIOL [Concomitant]
  5. XCANAX [Concomitant]
  6. ASPIRIN. [Concomitant]
     Active Substance: ASPIRIN
  7. PRESERVISION [Concomitant]
     Active Substance: MINERALS\VITAMINS
  8. FISH OIL [Concomitant]
     Active Substance: FISH OIL
  9. VITAMINS [Concomitant]
     Active Substance: VITAMINS
  10. CALCIUM [Concomitant]
     Active Substance: CALCIUM
  11. AVAPRO9 [Concomitant]
  12. AMLODOPINE [Concomitant]
     Active Substance: AMLODIPINE BESYLATE
  13. FLAXSEED [Concomitant]
     Active Substance: FLAX SEED

REACTIONS (15)
  - Fall [None]
  - Hypopnoea [None]
  - Influenza like illness [None]
  - Loss of personal independence in daily activities [None]
  - Musculoskeletal pain [None]
  - Back pain [None]
  - Embolism [None]
  - Myalgia [None]
  - Dyspnoea [None]
  - Lethargy [None]
  - Abdominal pain [None]
  - Hyperhidrosis [None]
  - Arthralgia [None]
  - Rhinorrhoea [None]
  - Balance disorder [None]
